FAERS Safety Report 11063942 (Version 2)
Quarter: 2015Q2

REPORT INFORMATION
  Report Type: Spontaneous
  Country: US (occurrence: US)
  Receive Date: 20150424
  Receipt Date: 20150610
  Transmission Date: 20150821
  Serious: Yes (Hospitalization, Disabling, Other)
  Sender: FDA-Public Use
  Company Number: US-GE HEALTHCARE MEDICAL DIAGNOSTICS-MYVW-PR-1504S-0031

PATIENT
  Age: 69 Year
  Sex: Male
  Weight: 95.34 kg

DRUGS (4)
  1. MINERALS NOS [Concomitant]
     Active Substance: MINERALS
  2. MYOVIEW [Suspect]
     Active Substance: TECHNETIUM TC-99M TETROFOSMIN\TETROFOSMIN
     Indication: ARTERIOSCLEROSIS
     Route: 042
     Dates: start: 201207, end: 201207
  3. MYOVIEW [Suspect]
     Active Substance: TECHNETIUM TC-99M TETROFOSMIN\TETROFOSMIN
     Indication: DIAGNOSTIC PROCEDURE
     Route: 042
     Dates: start: 201207, end: 201207
  4. TECHNETIUM 99M GENERATOR [Concomitant]

REACTIONS (31)
  - Vision blurred [Unknown]
  - Dizziness [Unknown]
  - Renal pain [Unknown]
  - Liver disorder [Unknown]
  - Hypotonia [Unknown]
  - Arthralgia [Unknown]
  - Malaise [Unknown]
  - Anxiety [Unknown]
  - Pancreatic disorder [Unknown]
  - Renal disorder [Unknown]
  - Balance disorder [Unknown]
  - Atrial fibrillation [Recovered/Resolved]
  - Hepatic pain [Unknown]
  - Abdominal pain upper [Unknown]
  - Gingival pain [Unknown]
  - Erythema [Unknown]
  - Heart rate increased [Recovered/Resolved]
  - Hypertension [Unknown]
  - Atrial fibrillation [Not Recovered/Not Resolved]
  - Tinnitus [Unknown]
  - Asthenia [Unknown]
  - Fatigue [Unknown]
  - Pleural effusion [Unknown]
  - Influenza [Recovered/Resolved]
  - Coordination abnormal [Unknown]
  - Gait disturbance [Recovering/Resolving]
  - Loose tooth [Unknown]
  - Alopecia [Unknown]
  - Dry skin [Unknown]
  - Asthenia [Recovering/Resolving]
  - Dyspnoea [Unknown]

NARRATIVE: CASE EVENT DATE: 2012
